FAERS Safety Report 25405241 (Version 1)
Quarter: 2025Q2

REPORT INFORMATION
  Report Type: Report from Study
  Country: CA (occurrence: CA)
  Receive Date: 20250606
  Receipt Date: 20250606
  Transmission Date: 20250716
  Serious: Yes (Other)
  Sender: JOHNSON AND JOHNSON
  Company Number: CA-JNJFOC-20250306174

PATIENT
  Age: 59 Year
  Sex: Female
  Weight: 58 kg

DRUGS (2)
  1. SIMPONI [Suspect]
     Active Substance: GOLIMUMAB
     Indication: Polymyalgia rheumatica
     Route: 058
  2. SIMPONI [Suspect]
     Active Substance: GOLIMUMAB
     Indication: Rheumatoid arthritis
     Route: 058
     Dates: start: 20230609

REACTIONS (11)
  - Gallbladder polyp [Unknown]
  - Renal impairment [Unknown]
  - Oedema [Recovered/Resolved]
  - Injection site reaction [Unknown]
  - Device issue [Unknown]
  - Ecchymosis [Unknown]
  - Eczema nummular [Recovered/Resolved]
  - Hypoaesthesia [Unknown]
  - Hyperaesthesia teeth [Unknown]
  - Hyperkeratosis [Unknown]
  - Hypersensitivity [Unknown]

NARRATIVE: CASE EVENT DATE: 20250228
